FAERS Safety Report 9951233 (Version 1)
Quarter: 2014Q1

REPORT INFORMATION
  Report Type: Report from Study
  Country: US (occurrence: US)
  Receive Date: 20140304
  Receipt Date: 20140304
  Transmission Date: 20141002
  Serious: No
  Sender: FDA-Public Use
  Company Number: US-ABBVIE-13P-163-1068209-00

PATIENT
  Age: 49 Year
  Sex: Female
  Weight: 58.11 kg

DRUGS (7)
  1. HUMIRA [Suspect]
     Indication: POLYARTHRITIS
     Dates: start: 20130321
  2. MELOXICAM [Concomitant]
     Indication: PAIN
  3. PLAQUENIL [Concomitant]
     Indication: POLYARTHRITIS
  4. GABAPENTIN [Concomitant]
     Indication: PAIN
  5. DEXILANT [Concomitant]
     Indication: GASTROOESOPHAGEAL REFLUX DISEASE
  6. ZYRTEC [Concomitant]
     Indication: HYPERSENSITIVITY
  7. FLONASE [Concomitant]
     Indication: HYPERSENSITIVITY

REACTIONS (1)
  - Off label use [Not Recovered/Not Resolved]
